FAERS Safety Report 12314963 (Version 1)
Quarter: 2016Q2

REPORT INFORMATION
  Report Type: Spontaneous
  Country: CA (occurrence: CA)
  Receive Date: 20160428
  Receipt Date: 20160428
  Transmission Date: 20160815
  Serious: Yes (Death, Hospitalization)
  Sender: FDA-Public Use
  Company Number: CA-MALLINCKRODT-T201601448

PATIENT
  Age: 18 Day
  Sex: Male
  Weight: 2.34 kg

DRUGS (3)
  1. METHADOSE [Suspect]
     Active Substance: METHADONE HYDROCHLORIDE
     Indication: PRODUCT USED FOR UNKNOWN INDICATION
     Dosage: PARENT DOSE 85-115 MG
     Route: 064
  2. METHADOSE [Suspect]
     Active Substance: METHADONE HYDROCHLORIDE
     Dosage: PARENT DOSE 85-115 MG
     Route: 063
  3. COCAINE [Suspect]
     Active Substance: COCAINE
     Indication: INTENTIONAL PRODUCT MISUSE
     Route: 063

REACTIONS (6)
  - Toxicity to various agents [Fatal]
  - Exposure during pregnancy [Fatal]
  - Neonatal respiratory distress syndrome [Unknown]
  - Pneumonia [Fatal]
  - Exposure during breast feeding [Fatal]
  - Drug withdrawal syndrome neonatal [Unknown]
